FAERS Safety Report 5088431-0 (Version None)
Quarter: 2006Q3

REPORT INFORMATION
  Report Type: 
  Country: None (occurrence: None)
  Receive Date: 20060821
  Receipt Date: 20060804
  Transmission Date: 20061208
  Serious: Yes (Hospitalization)
  Sender: FDA-Public Use
  Company Number: 2006PV018824

PATIENT
  Age: 75 Year
  Sex: Male
  Weight: 92.0802 kg

DRUGS (7)
  1. BYETTA [Suspect]
     Indication: DIABETES MELLITUS NON-INSULIN-DEPENDENT
     Dosage: SEE IMAGE
     Route: 058
     Dates: start: 20060401, end: 20060426
  2. BYETTA [Suspect]
     Indication: DIABETES MELLITUS NON-INSULIN-DEPENDENT
     Dosage: SEE IMAGE
     Route: 058
     Dates: start: 20060626, end: 20060722
  3. BYETTA [Suspect]
     Indication: DIABETES MELLITUS NON-INSULIN-DEPENDENT
     Dosage: SEE IMAGE
     Route: 058
     Dates: start: 20060723
  4. METOPROLOL TARTRATE [Suspect]
     Dosage: 50 MG;BID;PO
     Route: 048
     Dates: start: 19980101, end: 20060701
  5. PRANDIN [Concomitant]
  6. LASIX [Concomitant]
  7. FLOMAX [Concomitant]

REACTIONS (3)
  - ARRHYTHMIA [None]
  - BLOOD GLUCOSE INCREASED [None]
  - LOSS OF CONSCIOUSNESS [None]
